FAERS Safety Report 12408580 (Version 1)
Quarter: 2016Q2

REPORT INFORMATION
  Report Type: Spontaneous
  Country: US (occurrence: US)
  Receive Date: 20160526
  Receipt Date: 20160526
  Transmission Date: 20160815
  Serious: Yes (Other)
  Sender: FDA-Public Use
  Company Number: US-PFIZER INC-2016268053

PATIENT
  Age: 79 Year
  Sex: Male

DRUGS (2)
  1. RAMIPRIL. [Suspect]
     Active Substance: RAMIPRIL
     Indication: BLOOD PRESSURE ABNORMAL
     Dates: start: 201602
  2. ATENOLOL. [Concomitant]
     Active Substance: ATENOLOL
     Indication: BLOOD PRESSURE ABNORMAL

REACTIONS (4)
  - Asthenia [Unknown]
  - Muscular weakness [Unknown]
  - Fatigue [Unknown]
  - Ataxia [Unknown]

NARRATIVE: CASE EVENT DATE: 201604
